FAERS Safety Report 16349370 (Version 1)
Quarter: 2019Q2

REPORT INFORMATION
  Report Type: Spontaneous
  Country: US (occurrence: US)
  Receive Date: 20190523
  Receipt Date: 20190523
  Transmission Date: 20190711
  Serious: Yes (Other)
  Sender: FDA-Public Use
  Company Number: US-TEVA-2019-US-1052752

PATIENT

DRUGS (1)
  1. IFOSFAMIDE. [Suspect]
     Active Substance: IFOSFAMIDE
     Indication: OSTEOSARCOMA
     Dosage: 14 GM/M2 DIVIDED IN 7 DOSES EVERY 12 HOURS
     Route: 065

REACTIONS (3)
  - Renal failure [Unknown]
  - Electrolyte imbalance [Unknown]
  - Renal tubular disorder [Unknown]
